FAERS Safety Report 5199432-6 (Version None)
Quarter: 2006Q4

REPORT INFORMATION
  Report Type: 
  Country: None (occurrence: None)
  Receive Date: 20061229
  Receipt Date: 20061219
  Transmission Date: 20070319
  Serious: Yes (Disabling)
  Sender: FDA-Public Use
  Company Number: CIP05000514

PATIENT
  Age: 65 Year
  Sex: Female

DRUGS (4)
  1. DIDRONEL [Suspect]
     Indication: OSTEOPOROSIS
     Dosage: 400 MG CYCLIC, ORAL
     Route: 048
     Dates: start: 20050201, end: 20050215
  2. EVISTA [Concomitant]
  3. THYROID HORMONES [Concomitant]
  4. BIOTIN [Concomitant]

REACTIONS (6)
  - ALOPECIA [None]
  - ASTHENIA [None]
  - CONJUNCTIVAL HAEMORRHAGE [None]
  - DYSPNOEA [None]
  - HEADACHE [None]
  - NAUSEA [None]
